FAERS Safety Report 8010494-0 (Version None)
Quarter: 2011Q4

REPORT INFORMATION
  Report Type: 
  Country: None (occurrence: None)
  Receive Date: 20111228
  Receipt Date: 20111220
  Transmission Date: 20120403
  Serious: Yes (Other)
  Sender: FDA-Public Use
  Company Number: US-US-EMD SERONO, INC.-7103023

PATIENT
  Sex: Female

DRUGS (1)
  1. REBIF [Suspect]
     Indication: MULTIPLE SCLEROSIS
     Route: 058
     Dates: start: 20110630, end: 20111101

REACTIONS (6)
  - INFLUENZA LIKE ILLNESS [None]
  - DEPRESSED MOOD [None]
  - ASTHENIA [None]
  - MALAISE [None]
  - MOBILITY DECREASED [None]
  - VISUAL ACUITY REDUCED [None]
